FAERS Safety Report 6337920-7 (Version None)
Quarter: 2009Q3

REPORT INFORMATION
  Report Type: 
  Country: None (occurrence: None)
  Receive Date: 20090902
  Receipt Date: 20090831
  Transmission Date: 20100115
  Serious: Yes (Death)
  Sender: FDA-Public Use
  Company Number: JP-JNJFOC-20090900270

PATIENT
  Sex: Male

DRUGS (9)
  1. DUROTEP MT [Suspect]
     Route: 062
  2. DUROTEP MT [Suspect]
     Indication: CANCER PAIN
     Route: 062
  3. ANPEC (MORPHINE HYDROCHLORIDE) [Concomitant]
     Indication: CANCER PAIN
     Route: 054
  4. OMEPRAL [Concomitant]
     Route: 042
  5. PRIMPERAN [Concomitant]
     Route: 042
  6. RINDERON [Concomitant]
     Route: 042
  7. RINDERON [Concomitant]
     Route: 042
  8. RINDERON [Concomitant]
     Route: 042
  9. KEBERA-G (GLYCYRRHIZIN/GLYCINE/CYSTEINE COMBINED DRUG) [Concomitant]
     Route: 042

REACTIONS (2)
  - GASTRIC CANCER [None]
  - WRONG TECHNIQUE IN DRUG USAGE PROCESS [None]
